FAERS Safety Report 6466607-5 (Version None)
Quarter: 2009Q4

REPORT INFORMATION
  Report Type: 
  Country: None (occurrence: None)
  Receive Date: 20091127
  Receipt Date: 20091112
  Transmission Date: 20100525
  Serious: Yes (Other)
  Sender: FDA-Public Use
  Company Number: AUR-APL-2009-01325

PATIENT
  Age: 42 Year
  Sex: Male
  Weight: 85.7298 kg

DRUGS (4)
  1. LISINOPRIL [Suspect]
     Indication: HYPERTENSION
     Dates: end: 20091101
  2. CHANTIX [Suspect]
     Indication: SMOKING CESSATION THERAPY
  3. ZOCOR [Concomitant]
  4. ATENOLOL [Concomitant]

REACTIONS (5)
  - ABNORMAL BEHAVIOUR [None]
  - COUGH [None]
  - NAUSEA [None]
  - PNEUMONIA [None]
  - STRESS [None]
